FAERS Safety Report 9373912 (Version 4)
Quarter: 2014Q2

REPORT INFORMATION
  Report Type: Report from Study
  Country: BR (occurrence: BR)
  Receive Date: 20130628
  Receipt Date: 20140410
  Transmission Date: 20141212
  Serious: Yes (Hospitalization, Other)
  Sender: FDA-Public Use
  Company Number: BR-ROCHE-1241362

PATIENT
  Sex: Female
  Weight: 27.4 kg

DRUGS (7)
  1. PULMOZYME [Suspect]
     Indication: CYSTIC FIBROSIS
     Dosage: 1 INHALATORY AMPOULE
     Route: 055
     Dates: start: 2010
  2. PULMOZYME [Suspect]
     Dosage: DURING THE DAY
     Route: 065
  3. AZITHROMYCIN [Suspect]
     Indication: PSEUDOMONAS INFECTION
     Route: 065
     Dates: start: 2013, end: 2013
  4. OMEPRAZOLE [Concomitant]
     Indication: GASTRITIS
  5. PANCREATIN [Concomitant]
     Dosage: 10,000MG (ONE TABLET BEFORE BREAK FAST), 25,000MG (TWO TABLETS AFTER LUNCH)
     Route: 065
  6. PARACETAMOL [Concomitant]
     Indication: PAIN
  7. DIPYRONE [Concomitant]
     Indication: PAIN

REACTIONS (9)
  - Dyspnoea [Not Recovered/Not Resolved]
  - Vomiting [Recovered/Resolved]
  - Pneumonia [Recovering/Resolving]
  - Weight decreased [Not Recovered/Not Resolved]
  - Cough [Not Recovered/Not Resolved]
  - Disease progression [Recovering/Resolving]
  - Pseudomonas infection [Recovered/Resolved]
  - Headache [Recovered/Resolved]
  - Diarrhoea [Recovered/Resolved]
